FAERS Safety Report 25839046 (Version 1)
Quarter: 2025Q3

REPORT INFORMATION
  Report Type: Spontaneous
  Country: CN (occurrence: CN)
  Receive Date: 20250924
  Receipt Date: 20250924
  Transmission Date: 20251020
  Serious: Yes (Hospitalization, Other)
  Sender: NOVITIUM PHARMA
  Company Number: CN-NOVITIUMPHARMA-2025CNNVP02378

PATIENT
  Age: 52 Year
  Sex: Male

DRUGS (2)
  1. DEXAMETHASONE [Suspect]
     Active Substance: DEXAMETHASONE
     Indication: Psoriasis
     Route: 030
  2. GLYCYRRHIZIN [Concomitant]
     Active Substance: GLYCYRRHIZIN

REACTIONS (2)
  - Upper respiratory tract infection [Unknown]
  - Adrenal insufficiency [Recovered/Resolved]
